FAERS Safety Report 8427456-1 (Version None)
Quarter: 2012Q2

REPORT INFORMATION
  Report Type: 
  Country: None (occurrence: None)
  Receive Date: 20120611
  Receipt Date: 20120606
  Transmission Date: 20120825
  Serious: Yes (Hospitalization, Other)
  Sender: FDA-Public Use
  Company Number: FR-PFIZER INC-2012116566

PATIENT
  Age: 31 Year
  Sex: Female
  Weight: 8 kg

DRUGS (6)
  1. IBUPROFEN [Suspect]
     Indication: PAIN
     Dosage: UNK
     Route: 048
     Dates: start: 20100401
  2. MEDROL [Suspect]
     Indication: COUGH
     Dosage: UNK
     Route: 048
     Dates: start: 20100401
  3. NIFLURIL [Suspect]
     Indication: PAIN
     Dosage: UNK
     Route: 048
     Dates: start: 20100401
  4. IMURAN [Concomitant]
     Indication: CHRONIC HEPATITIS
     Dosage: UNK
     Route: 048
     Dates: start: 20040101
  5. PREDNISOLONE [Suspect]
     Indication: COUGH
     Dosage: UNK
     Route: 048
     Dates: start: 20100401
  6. CLARITHROMYCIN [Suspect]
     Dosage: UNK
     Route: 048
     Dates: start: 20100401

REACTIONS (4)
  - HEPATIC FAILURE [None]
  - HEPATIC ENZYME INCREASED [None]
  - CHOLESTASIS [None]
  - JAUNDICE [None]
